FAERS Safety Report 6522022-7 (Version None)
Quarter: 2009Q4

REPORT INFORMATION
  Report Type: 
  Country: None (occurrence: None)
  Receive Date: 20091230
  Receipt Date: 20091222
  Transmission Date: 20100525
  Serious: Yes (Death, Hospitalization)
  Sender: FDA-Public Use
  Company Number: DE-ROCHE-671606

PATIENT
  Sex: Female
  Weight: 71 kg

DRUGS (6)
  1. BEVACIZUMAB [Suspect]
     Dosage: TEMPORARILY INTERRUPTED;, FREQUENCY: D1,Q3W, LAST DOSE PRIOR TO SAE: 01 OCT 2009
     Route: 042
     Dates: start: 20090709
  2. CAPECITABINE [Suspect]
     Dosage: TEMPORARILY INTERRUPTED,LAST DOSE PRIOR TO SAE: 01 OCT 2009, FREQUENCY: DAY1-14
     Route: 048
     Dates: start: 20090709
  3. VINORELBINE [Suspect]
     Dosage: TEMPORARILY INTERRUPTED, LAST DOSE PRIOR TO SAE: 08 OCT 2009.  FREQUENCY: D1+8
     Route: 042
     Dates: start: 20090709
  4. SIFROL [Concomitant]
  5. HYDROMORPHONE HCL [Concomitant]
     Dates: start: 20090820, end: 20091001
  6. NOVAMINSULFON [Concomitant]
     Dates: start: 20090820, end: 20091001

REACTIONS (3)
  - MULTI-ORGAN FAILURE [None]
  - PALMAR-PLANTAR ERYTHRODYSAESTHESIA SYNDROME [None]
  - STAPHYLOCOCCAL INFECTION [None]
